FAERS Safety Report 25626864 (Version 1)
Quarter: 2025Q3

REPORT INFORMATION
  Report Type: Spontaneous
  Country: GB (occurrence: GB)
  Receive Date: 20250731
  Receipt Date: 20250731
  Transmission Date: 20251020
  Serious: Yes (Death, Other)
  Sender: ABBVIE
  Company Number: None

PATIENT
  Age: 25 Year
  Sex: Male
  Weight: 75 kg

DRUGS (3)
  1. CARIPRAZINE [Suspect]
     Active Substance: CARIPRAZINE
     Indication: Bipolar disorder
     Dosage: FIRST 1.5 MG THEN INCREASED TO 3 MG?LAST ADMIN DATE-2025
     Route: 048
     Dates: start: 20250602
  2. CARIPRAZINE [Suspect]
     Active Substance: CARIPRAZINE
     Indication: Bipolar disorder
     Route: 048
     Dates: start: 2025
  3. PROMETHAZINE [Concomitant]
     Active Substance: PROMETHAZINE HYDROCHLORIDE
     Indication: Product used for unknown indication

REACTIONS (17)
  - Catatonia [Fatal]
  - Suicidal ideation [Fatal]
  - Suicidal behaviour [Fatal]
  - Completed suicide [Fatal]
  - Lethargy [Fatal]
  - Insomnia [Fatal]
  - Irritability [Fatal]
  - Thinking abnormal [Fatal]
  - Staring [Fatal]
  - Social avoidant behaviour [Fatal]
  - Cognitive disorder [Fatal]
  - Fluid intake reduced [Fatal]
  - Anger [Fatal]
  - Dissociation [Fatal]
  - Agitation [Fatal]
  - Food refusal [Fatal]
  - Frustration tolerance decreased [Fatal]

NARRATIVE: CASE EVENT DATE: 20250101
